FAERS Safety Report 14329495 (Version 1)
Quarter: 2017Q4

REPORT INFORMATION
  Report Type: Spontaneous
  Country: US (occurrence: US)
  Receive Date: 20171227
  Receipt Date: 20171227
  Transmission Date: 20180321
  Serious: No
  Sender: FDA-Public Use
  Company Number: US-BAYER-2017-243719

PATIENT
  Sex: Male
  Weight: 78.96 kg

DRUGS (3)
  1. SUCRALFATE. [Concomitant]
     Active Substance: SUCRALFATE
     Dosage: 1 DF, HS (1 DOSE IN WATER DAILY BEFORE BEDTIME)
  2. CALCIUM [CALCIUM] [Concomitant]
     Active Substance: CALCIUM
     Indication: NUTRITIONAL SUPPLEMENTATION
     Dosage: 1 DF, BID
     Route: 048
  3. ZEGERID OTC CAPSULES [Suspect]
     Active Substance: OMEPRAZOLE\SODIUM BICARBONATE
     Indication: GASTROINTESTINAL DISORDER
     Dosage: ONE DOSE IN MORNING, ONE AT NIGHT DAILY DOSE
     Route: 048
     Dates: start: 2012

REACTIONS (3)
  - Incorrect drug administration duration [Unknown]
  - Bone density decreased [Not Recovered/Not Resolved]
  - Underdose [Unknown]

NARRATIVE: CASE EVENT DATE: 2012
